FAERS Safety Report 23251302 (Version 1)
Quarter: 2023Q4

REPORT INFORMATION
  Report Type: Spontaneous
  Country: CN (occurrence: CN)
  Receive Date: 20231201
  Receipt Date: 20231201
  Transmission Date: 20240110
  Serious: Yes (Hospitalization)
  Sender: FDA-Public Use
  Company Number: CN-JNJFOC-20231134046

PATIENT

DRUGS (2)
  1. ERLEADA [Suspect]
     Active Substance: APALUTAMIDE
     Indication: Product used for unknown indication
     Route: 048
  2. GOSERELIN [Concomitant]
     Active Substance: GOSERELIN

REACTIONS (4)
  - Mouth haemorrhage [Recovering/Resolving]
  - Mouth swelling [Recovering/Resolving]
  - Pyrexia [Recovering/Resolving]
  - Feeding disorder [Recovered/Resolved]
